FAERS Safety Report 11910881 (Version 1)
Quarter: 2016Q1

REPORT INFORMATION
  Report Type: Spontaneous
  Country: US (occurrence: None)
  Receive Date: 20160111
  Receipt Date: 20160111
  Transmission Date: 20160526
  Serious: No
  Sender: FDA-Public Use
  Company Number: None

PATIENT
  Age: 57 Year
  Sex: Female
  Weight: 72.12 kg

DRUGS (15)
  1. EMBEDA [Suspect]
     Active Substance: MORPHINE SULFATE\NALTREXONE HYDROCHLORIDE
     Indication: SPINAL OSTEOARTHRITIS
     Dosage: 1-2 MG TAKEN BY MOUTH
     Dates: start: 20160105, end: 20160108
  2. LISINOPRIL. [Concomitant]
     Active Substance: LISINOPRIL
  3. VITAMIN B COMPLEX [Concomitant]
     Active Substance: CYANOCOBALAMIN\DEXPANTHENOL\NIACINAMIDE\PYRIDOXINE HYDROCHLORIDE\RIBOFLAVIN 5^-PHOSPHATE SODIUM\THIAMINE HYDROCHLORIDE\VITAMIN B COMPLEX
  4. LECETHIN [Concomitant]
  5. COLLAGEN [Concomitant]
     Active Substance: COLLAGEN
  6. EMBEDA [Suspect]
     Active Substance: MORPHINE SULFATE\NALTREXONE HYDROCHLORIDE
     Indication: MYELOPATHY
     Dosage: 1-2 MG TAKEN BY MOUTH
     Dates: start: 20160105, end: 20160108
  7. CARISOPORODOL [Concomitant]
  8. CALCIUM [Concomitant]
     Active Substance: CALCIUM
  9. VITAMIN E [Concomitant]
     Active Substance: .ALPHA.-TOCOPHEROL
  10. EMBEDA [Suspect]
     Active Substance: MORPHINE SULFATE\NALTREXONE HYDROCHLORIDE
     Indication: OSTEOARTHRITIS
     Dosage: 1-2 MG TAKEN BY MOUTH
     Dates: start: 20160105, end: 20160108
  11. PREMARIN [Concomitant]
     Active Substance: ESTROGENS, CONJUGATED
  12. FLAXSEED [Concomitant]
     Active Substance: FLAX SEED
  13. EMBEDA [Suspect]
     Active Substance: MORPHINE SULFATE\NALTREXONE HYDROCHLORIDE
     Indication: FIBROMYALGIA
     Dosage: 1-2 MG TAKEN BY MOUTH
     Dates: start: 20160105, end: 20160108
  14. MULTI VITAMIN [Concomitant]
     Active Substance: VITAMINS
  15. GARLIC. [Concomitant]
     Active Substance: GARLIC

REACTIONS (20)
  - Musculoskeletal chest pain [None]
  - Abdominal pain [None]
  - Toothache [None]
  - Insomnia [None]
  - Pain [None]
  - Sensory disturbance [None]
  - Muscle spasms [None]
  - Irritability [None]
  - Chest pain [None]
  - Vision blurred [None]
  - Chills [None]
  - Nausea [None]
  - Back pain [None]
  - Neuralgia [None]
  - Hot flush [None]
  - Thinking abnormal [None]
  - Drug interaction [None]
  - Arthralgia [None]
  - Pain in extremity [None]
  - Urinary retention [None]

NARRATIVE: CASE EVENT DATE: 20160105
